FAERS Safety Report 11595775 (Version 6)
Quarter: 2016Q3

REPORT INFORMATION
  Report Type: Report from Study
  Country: CA (occurrence: CA)
  Receive Date: 20151006
  Receipt Date: 20160710
  Transmission Date: 20161109
  Serious: Yes (Other)
  Sender: FDA-Public Use
  Company Number: PHHY2014CA154622

PATIENT
  Age: 51 Year
  Sex: Female

DRUGS (3)
  1. DESYREL [Suspect]
     Active Substance: TRAZODONE HYDROCHLORIDE
     Indication: INSOMNIA
     Route: 065
  2. IMOVANE [Concomitant]
     Active Substance: ZOPICLONE
     Indication: PRODUCT USED FOR UNKNOWN INDICATION
     Route: 065
  3. TASIGNA [Suspect]
     Active Substance: NILOTINIB
     Indication: CHRONIC MYELOID LEUKAEMIA
     Dosage: 300 MG, BID
     Route: 048
     Dates: start: 20141109

REACTIONS (34)
  - Skin texture abnormal [Unknown]
  - Tendon discomfort [Unknown]
  - Pruritus [Unknown]
  - Pain [Recovering/Resolving]
  - Acne [Unknown]
  - Anaemia [Unknown]
  - Asthenia [Unknown]
  - Bone pain [Unknown]
  - Cough [Unknown]
  - Chromaturia [Recovered/Resolved]
  - Anxiety [Unknown]
  - Mood altered [Unknown]
  - Musculoskeletal pain [Unknown]
  - Constipation [Unknown]
  - Dry mouth [Unknown]
  - Mental disorder [Unknown]
  - Fatigue [Unknown]
  - Arthralgia [Unknown]
  - Nausea [Unknown]
  - Insomnia [Not Recovered/Not Resolved]
  - Rheumatoid arthritis [Recovering/Resolving]
  - Myalgia [Recovering/Resolving]
  - Headache [Unknown]
  - Muscle spasms [Unknown]
  - Back pain [Unknown]
  - Depression [Unknown]
  - Dysgeusia [Unknown]
  - Malaise [Unknown]
  - Palpitations [Recovered/Resolved]
  - Pain in extremity [Unknown]
  - Hyperaesthesia [Recovering/Resolving]
  - Abdominal pain lower [Unknown]
  - Weight increased [Unknown]
  - Abdominal pain [Unknown]

NARRATIVE: CASE EVENT DATE: 201411
